FAERS Safety Report 19277730 (Version 4)
Quarter: 2021Q3

REPORT INFORMATION
  Report Type: Report from Study
  Country: CA (occurrence: CA)
  Receive Date: 20210520
  Receipt Date: 20210928
  Transmission Date: 20211014
  Serious: Yes (Other)
  Sender: FDA-Public Use
  Company Number: CA-JNJFOC-20210526020

PATIENT
  Age: 56 Year
  Sex: Male
  Weight: 100 kg

DRUGS (4)
  1. REMICADE [Suspect]
     Active Substance: INFLIXIMAB
     Route: 042
  2. TYLENOL [Concomitant]
     Active Substance: ACETAMINOPHEN
     Indication: PRODUCT USED FOR UNKNOWN INDICATION
     Route: 065
     Dates: end: 20210922
  3. REMICADE [Suspect]
     Active Substance: INFLIXIMAB
     Indication: CROHN^S DISEASE
     Dosage: THE PATIENT WAS ON REMICADE DOSE OF 800 MG SINCE 25 JANUARY 2016,?LAST REMICADE WAS ON MAR?2021
     Route: 042
     Dates: start: 20120823
  4. BENADRYL [Concomitant]
     Active Substance: DIPHENHYDRAMINE HYDROCHLORIDE
     Indication: PRODUCT USED FOR UNKNOWN INDICATION
     Route: 065
     Dates: end: 20210922

REACTIONS (4)
  - Bladder cancer [Unknown]
  - Product use issue [Unknown]
  - Crohn^s disease [Unknown]
  - Off label use [Unknown]
